FAERS Safety Report 9753823 (Version 1)
Quarter: 2013Q4

REPORT INFORMATION
  Report Type: Spontaneous
  Country: US (occurrence: US)
  Receive Date: 20131213
  Receipt Date: 20131213
  Transmission Date: 20140711
  Serious: No
  Sender: FDA-Public Use
  Company Number: US-GILEAD-2010-0027101

PATIENT
  Sex: Female
  Weight: 63.5 kg

DRUGS (19)
  1. LETAIRIS [Suspect]
     Indication: PULMONARY ARTERIAL HYPERTENSION
     Route: 048
     Dates: start: 20070907
  2. REVATIO [Concomitant]
  3. LISINOPRIL [Concomitant]
  4. CELEXA [Concomitant]
  5. NEXIUM [Concomitant]
  6. NIFEDICAL XL [Concomitant]
  7. PROVIGIL [Concomitant]
  8. LIPITOR [Concomitant]
  9. LASIX [Concomitant]
  10. WELLBUTRIN SR [Concomitant]
  11. SYNTHROID [Concomitant]
  12. LEXAPRO [Concomitant]
  13. FERROUS SULF [Concomitant]
  14. ASPIRIN [Concomitant]
  15. CENTRUM SILVER [Concomitant]
  16. CALCIUM +D [Concomitant]
  17. RANTIDINE [Concomitant]
  18. VITAMIN C [Concomitant]
  19. OXYGEN [Concomitant]

REACTIONS (1)
  - Anaemia [Unknown]
